FAERS Safety Report 18741441 (Version 1)
Quarter: 2021Q1

REPORT INFORMATION
  Report Type: Spontaneous
  Country: US (occurrence: US)
  Receive Date: 20210114
  Receipt Date: 20210114
  Transmission Date: 20210419
  Serious: No
  Sender: FDA-Public Use
  Company Number: US-ABBVIE-20K-163-3701447-00

PATIENT
  Sex: Female
  Weight: 72.64 kg

DRUGS (2)
  1. DUOPA [Suspect]
     Active Substance: CARBIDOPA\LEVODOPA
  2. DUOPA [Suspect]
     Active Substance: CARBIDOPA\LEVODOPA
     Indication: PRODUCT USED FOR UNKNOWN INDICATION
     Route: 050
     Dates: start: 20200727

REACTIONS (8)
  - Bradykinesia [Recovered/Resolved]
  - Device leakage [Unknown]
  - Depressed mood [Recovered/Resolved]
  - Muscle spasms [Recovered/Resolved]
  - Device information output issue [Unknown]
  - Feeling cold [Recovered/Resolved]
  - Weight increased [Unknown]
  - Mobility decreased [Recovered/Resolved]

NARRATIVE: CASE EVENT DATE: 2020
